FAERS Safety Report 13342312 (Version 1)
Quarter: 2017Q1

REPORT INFORMATION
  Report Type: Spontaneous
  Country: US (occurrence: US)
  Receive Date: 20170316
  Receipt Date: 20170316
  Transmission Date: 20170428
  Serious: Yes (Other)
  Sender: FDA-Public Use
  Company Number: US-TEVA-749939USA

PATIENT
  Sex: Female

DRUGS (2)
  1. COPAXONE [Suspect]
     Active Substance: GLATIRAMER ACETATE
     Dosage: UNKNOWN FORM STRENGTH
  2. NOVANTRONE [Suspect]
     Active Substance: MITOXANTRONE HYDROCHLORIDE
     Route: 065

REACTIONS (16)
  - Back injury [Unknown]
  - Dysarthria [Unknown]
  - Chemotherapy [Unknown]
  - Social problem [Unknown]
  - Adverse event [Unknown]
  - Meningitis bacterial [Unknown]
  - Biopsy skin [Unknown]
  - Mental disorder [Unknown]
  - Temperature intolerance [Unknown]
  - Emotional distress [Unknown]
  - Multiple sclerosis relapse [Unknown]
  - Malaise [Unknown]
  - Emotional disorder [Unknown]
  - Pain [Unknown]
  - Adverse food reaction [Unknown]
  - Concussion [Unknown]
